FAERS Safety Report 9495360 (Version 1)
Quarter: 2013Q3

REPORT INFORMATION
  Report Type: Spontaneous
  Country: FR (occurrence: FR)
  Receive Date: 20130903
  Receipt Date: 20130903
  Transmission Date: 20140515
  Serious: Yes (Hospitalization)
  Sender: FDA-Public Use
  Company Number: FR-GLAXOSMITHKLINE-B0916718A

PATIENT
  Age: 84 Year
  Sex: Female

DRUGS (10)
  1. ARIXTRA [Suspect]
     Indication: DEEP VEIN THROMBOSIS
     Dosage: 7.5MG PER DAY
     Route: 030
     Dates: start: 20130715, end: 20130729
  2. COUMADINE [Suspect]
     Indication: DEEP VEIN THROMBOSIS
     Route: 048
     Dates: start: 201307, end: 20130729
  3. VENTOLINE [Concomitant]
  4. TERCIAN [Concomitant]
     Dosage: 25MG PER DAY
  5. TERALITHE [Concomitant]
     Dosage: 600MG PER DAY
  6. PARKINANE [Concomitant]
     Dosage: 4MG PER DAY
  7. LEVOTHYROX [Concomitant]
     Dosage: 25MCG PER DAY
  8. DITROPAN [Concomitant]
  9. AMLOR [Concomitant]
     Dosage: 5MG PER DAY
  10. DUPHALAC [Concomitant]

REACTIONS (6)
  - Melaena [Recovered/Resolved]
  - Haematemesis [Recovered/Resolved]
  - Haemorrhagic anaemia [Recovered/Resolved]
  - Condition aggravated [Recovered/Resolved]
  - Injection site haematoma [Unknown]
  - Incorrect route of drug administration [Unknown]
